FAERS Safety Report 10449033 (Version 1)
Quarter: 2014Q3

REPORT INFORMATION
  Report Type: Spontaneous
  Country: IL (occurrence: None)
  Receive Date: 20140911
  Receipt Date: 20140911
  Transmission Date: 20150326
  Serious: Yes (Hospitalization)
  Sender: FDA-Public Use
  Company Number: None

PATIENT
  Age: 68 Year
  Sex: Female
  Weight: 51 kg

DRUGS (3)
  1. THYMOGLOBULIN [Suspect]
     Active Substance: LAPINE T-LYMPHOCYTE IMMUNE GLOBULIN
  2. BUSULFAN [Suspect]
     Active Substance: BUSULFAN
  3. FLUDARABINE PHOSPHATE. [Suspect]
     Active Substance: FLUDARABINE PHOSPHATE

REACTIONS (9)
  - Procedural complication [None]
  - Computerised tomogram abnormal [None]
  - Neurological decompensation [None]
  - Aspergillus infection [None]
  - Angiopathy [None]
  - Tachypnoea [None]
  - Cerebral aspergillosis [None]
  - Haemorrhage intracranial [None]
  - Injury [None]

NARRATIVE: CASE EVENT DATE: 20140901
